FAERS Safety Report 9385878 (Version 2)
Quarter: 2013Q3

REPORT INFORMATION
  Report Type: Spontaneous
  Country: US (occurrence: US)
  Receive Date: 20130705
  Receipt Date: 20130906
  Transmission Date: 20140515
  Serious: No
  Sender: FDA-Public Use
  Company Number: US-TEVA-416638USA

PATIENT
  Sex: Female

DRUGS (1)
  1. QNASL [Suspect]
     Dosage: ONE SPRAY IN EACH NOSTRIL DAILY
     Route: 055
     Dates: start: 20130615

REACTIONS (2)
  - Epistaxis [Recovered/Resolved]
  - Product odour abnormal [Unknown]
